FAERS Safety Report 21337333 (Version 2)
Quarter: 2022Q3

REPORT INFORMATION
  Report Type: Spontaneous
  Country: DE (occurrence: DE)
  Receive Date: 20220915
  Receipt Date: 20220928
  Transmission Date: 20221027
  Serious: Yes (Other)
  Sender: FDA-Public Use
  Company Number: DE-TEVA-2022-DE-2072342

PATIENT
  Age: 53 Year
  Sex: Male

DRUGS (7)
  1. GEMCITABINE [Suspect]
     Active Substance: GEMCITABINE
     Indication: Cholangiocarcinoma
     Dosage: 7 CYCLES WITH CISPLATIN
     Route: 065
     Dates: start: 201710
  2. GEMCITABINE [Suspect]
     Active Substance: GEMCITABINE
     Dosage: PALLIATIVE CHEMOTHERAPY WITH OXALIPLATIN; RECEIVED ONE CYCLE
     Route: 065
     Dates: start: 202011
  3. CISPLATIN [Suspect]
     Active Substance: CISPLATIN
     Indication: Cholangiocarcinoma
     Dosage: 7 CYCLES WITH GEMCITABINE
     Route: 065
     Dates: start: 201710, end: 201802
  4. OXALIPLATIN [Suspect]
     Active Substance: OXALIPLATIN
     Indication: Cholangiocarcinoma
     Dosage: PALLIATIVE CHEMOTHERAPY WITH GEMCITABINE; RECEIVED ONE CYCLE
     Route: 065
     Dates: start: 202011
  5. OLAPARIB [Suspect]
     Active Substance: OLAPARIB
     Indication: Cholangiocarcinoma
     Dosage: 600 MILLIGRAM DAILY; MONOTHERAPY FOR 4 WEEKS
     Route: 065
     Dates: start: 202011
  6. OLAPARIB [Suspect]
     Active Substance: OLAPARIB
     Dosage: 600 MILLIGRAM DAILY; IN COMBINATION WITH PEMBROLIZUMAB
     Route: 065
     Dates: start: 2020
  7. PEMBROLIZUMAB [Suspect]
     Active Substance: PEMBROLIZUMAB
     Indication: Cholangiocarcinoma
     Dosage: IN COMBINATION WITH OLAPARIB
     Route: 065
     Dates: start: 2020

REACTIONS (5)
  - Polyneuropathy [Unknown]
  - Pancytopenia [Unknown]
  - Anaemia [Unknown]
  - Immune-mediated thyroiditis [Recovered/Resolved]
  - Off label use [Unknown]

NARRATIVE: CASE EVENT DATE: 20200101
